FAERS Safety Report 14586207 (Version 4)
Quarter: 2018Q4

REPORT INFORMATION
  Report Type: Spontaneous
  Country: JP (occurrence: JP)
  Receive Date: 20180301
  Receipt Date: 20181220
  Transmission Date: 20190204
  Serious: Yes (Hospitalization, Other)
  Sender: FDA-Public Use
  Company Number: JP-AMGEN-JPNSP2018028030

PATIENT
  Age: 3 Decade
  Sex: Male
  Weight: 78 kg

DRUGS (2)
  1. LOXOPROFEN [Concomitant]
     Active Substance: LOXOPROFEN
     Indication: CHEST PAIN
     Dosage: 1 DF, UNK
     Route: 048
     Dates: start: 20180215, end: 20180215
  2. GRAN [Suspect]
     Active Substance: FILGRASTIM
     Indication: PERIPHERAL BLOOD STEM CELL APHERESIS
     Dosage: 750 MUG, QD
     Route: 058
     Dates: start: 20180209, end: 20180213

REACTIONS (1)
  - Myocarditis [Recovering/Resolving]

NARRATIVE: CASE EVENT DATE: 20180215
